FAERS Safety Report 23594767 (Version 1)
Quarter: 2024Q1

REPORT INFORMATION
  Report Type: Spontaneous
  Country: US (occurrence: US)
  Receive Date: 20240305
  Receipt Date: 20240305
  Transmission Date: 20240409
  Serious: No
  Sender: FDA-Public Use
  Company Number: US-ABBVIE-5662815

PATIENT

DRUGS (1)
  1. KYBELLA [Suspect]
     Active Substance: DEOXYCHOLIC ACID
     Indication: Periorbital swelling
     Dosage: TIME INTERVAL: AS NECESSARY: FORM STRENGTH: 10MG/ML SOL
     Route: 058

REACTIONS (1)
  - Swelling [Not Recovered/Not Resolved]
